FAERS Safety Report 9503421 (Version 1)
Quarter: 2013Q1

REPORT INFORMATION
  Report Type: Spontaneous
  Country: US (occurrence: None)
  Receive Date: 20130225
  Receipt Date: 20130225
  Transmission Date: 20140127
  Serious: Yes (Other)
  Sender: FDA-Public Use
  Company Number: 368448

PATIENT
  Age: 71 Year
  Sex: Female
  Weight: 95.2 kg

DRUGS (2)
  1. VICTOZA [Suspect]
     Indication: TYPE 2 DIABETES MELLITUS
     Route: 058
     Dates: start: 20121010, end: 201210
  2. GLIPIZIDE (GLIPIDIZE) [Concomitant]

REACTIONS (7)
  - Dehydration [None]
  - Pollakiuria [None]
  - Hunger [None]
  - Nausea [None]
  - Vomiting [None]
  - Injection site pain [None]
  - Therapeutic response decreased [None]
